FAERS Safety Report 16339686 (Version 1)
Quarter: 2019Q2

REPORT INFORMATION
  Report Type: Spontaneous
  Country: BR (occurrence: BR)
  Receive Date: 20190521
  Receipt Date: 20190521
  Transmission Date: 20190711
  Serious: Yes (Other)
  Sender: FDA-Public Use
  Company Number: BR-ELI_LILLY_AND_COMPANY-BR201905004657

PATIENT
  Sex: Female

DRUGS (1)
  1. HUMALOG [Suspect]
     Active Substance: INSULIN LISPRO
     Indication: DIABETES MELLITUS
     Dosage: 7 INTERNATIONAL UNIT, UNKNOWN
     Route: 065

REACTIONS (8)
  - Salivary gland mass [Unknown]
  - Post procedural swelling [Unknown]
  - Myopia [Unknown]
  - Blood glucose increased [Unknown]
  - Incorrect dose administered [Unknown]
  - Hypoglycaemia [Unknown]
  - Post procedural haematoma [Unknown]
  - Speech disorder [Unknown]

NARRATIVE: CASE EVENT DATE: 20190508
